FAERS Safety Report 8515238 (Version 3)
Quarter: 2013Q1

REPORT INFORMATION
  Report Type: Report from Study
  Country: US (occurrence: US)
  Receive Date: 20120417
  Receipt Date: 20130115
  Transmission Date: 20140127
  Serious: Yes (Other)
  Sender: FDA-Public Use
  Company Number: US-BAYER-2012-035537

PATIENT
  Age: 60 Year
  Sex: Male

DRUGS (4)
  1. NEXAVAR [Suspect]
     Indication: HEPATIC CANCER
     Dosage: UNK
     Route: 048
     Dates: start: 20120201, end: 20120218
  2. NEXAVAR [Suspect]
     Indication: HEPATIC CANCER
     Dosage: 400 MG, BID
     Route: 048
     Dates: start: 20120413
  3. NEXAVAR [Suspect]
     Indication: HEPATIC CANCER
     Dosage: UNK
     Dates: start: 201203
  4. NEXAVAR [Suspect]
     Indication: HEPATIC CANCER
     Dosage: UNK
     Dates: start: 201206

REACTIONS (9)
  - Blood disorder [Recovering/Resolving]
  - Chest discomfort [Recovering/Resolving]
  - Epistaxis [Recovering/Resolving]
  - Productive cough [Recovering/Resolving]
  - Fatigue [Not Recovered/Not Resolved]
  - Blood count abnormal [Not Recovered/Not Resolved]
  - Platelet count decreased [Not Recovered/Not Resolved]
  - Rash [Not Recovered/Not Resolved]
  - Blister [Not Recovered/Not Resolved]
